FAERS Safety Report 9547469 (Version 2)
Quarter: 2013Q4

REPORT INFORMATION
  Report Type: Spontaneous
  Country: GB (occurrence: GB)
  Receive Date: 20130924
  Receipt Date: 20131004
  Transmission Date: 20140711
  Serious: No
  Sender: FDA-Public Use
  Company Number: GB-JNJFOC-20130912931

PATIENT
  Sex: 0

DRUGS (1)
  1. DUROGESIC DTRANS [Suspect]
     Indication: PAIN
     Route: 062

REACTIONS (2)
  - Inappropriate schedule of drug administration [Unknown]
  - Wrong technique in drug usage process [Unknown]
